FAERS Safety Report 4742499-7 (Version None)
Quarter: 2005Q3

REPORT INFORMATION
  Report Type: 
  Country: None (occurrence: None)
  Receive Date: 20050808
  Receipt Date: 20050722
  Transmission Date: 20060218
  Serious: Yes (Hospitalization, Other)
  Sender: FDA-Public Use
  Company Number: USA0507103549

PATIENT
  Age: 34 Year
  Sex: Female

DRUGS (3)
  1. CYMBALTA [Suspect]
     Dosage: 60 MG DAY
     Dates: start: 20050501
  2. LIPITOR [Concomitant]
  3. NEXIUM [Concomitant]

REACTIONS (3)
  - GASTRIC BYPASS [None]
  - PAIN [None]
  - POST PROCEDURAL COMPLICATION [None]
